FAERS Safety Report 5634401-0 (Version None)
Quarter: 2008Q1

REPORT INFORMATION
  Report Type: 
  Country: None (occurrence: None)
  Receive Date: 20080222
  Receipt Date: 20080208
  Transmission Date: 20080703
  Serious: Yes (Hospitalization, Other)
  Sender: FDA-Public Use
  Company Number: CA-ELI_LILLY_AND_COMPANY-CA200707004386

PATIENT
  Age: 50 Year
  Sex: Female

DRUGS (15)
  1. FORTEO [Suspect]
     Indication: OSTEOPOROSIS
     Dosage: 20 UG, DAILY (1/D)
     Route: 058
     Dates: start: 20070610
  2. TPN [Concomitant]
  3. MORPHINE [Concomitant]
     Route: 042
  4. TYLENOL                                 /SCH/ [Concomitant]
     Dosage: UNK, AS NEEDED
  5. ESTROGEN NOS [Concomitant]
  6. LOSEC I.V. [Concomitant]
  7. LORAZEPAM [Concomitant]
  8. TRAZODONE HCL [Concomitant]
  9. CRESTOR [Concomitant]
  10. WARFARIN SODIUM [Concomitant]
  11. URSODIOL [Concomitant]
  12. GRAVOL TAB [Concomitant]
  13. IMOVANE [Concomitant]
  14. FLOVENT [Concomitant]
  15. VENTOLIN [Concomitant]

REACTIONS (5)
  - BEDRIDDEN [None]
  - CHEST PAIN [None]
  - PULMONARY EMBOLISM [None]
  - PYREXIA [None]
  - SEPSIS [None]
